FAERS Safety Report 13005388 (Version 2)
Quarter: 2017Q1

REPORT INFORMATION
  Report Type: Spontaneous
  Country: PT (occurrence: PT)
  Receive Date: 20161207
  Receipt Date: 20170125
  Transmission Date: 20170428
  Serious: Yes (Other)
  Sender: FDA-Public Use
  Company Number: PT-SUN PHARMACEUTICAL INDUSTRIES LTD-2016R1-128829

PATIENT
  Age: 25 Year
  Sex: Female

DRUGS (1)
  1. PREDNISONE. [Suspect]
     Active Substance: PREDNISONE
     Indication: SKIN DISORDER
     Dosage: 20 MG, DAILY
     Route: 065

REACTIONS (2)
  - Osteonecrosis [Recovered/Resolved]
  - Self-medication [Unknown]
